FAERS Safety Report 5233781-8 (Version None)
Quarter: 2007Q1

REPORT INFORMATION
  Report Type: 
  Country: None (occurrence: None)
  Receive Date: 20061208
  Receipt Date: 20060719
  Transmission Date: 20070707
  Serious: Yes (Other)
  Sender: FDA-Public Use
  Company Number: 2006UW14734

PATIENT
  Age: 78 Year
  Sex: Female
  Weight: 43.091 kg

DRUGS (3)
  1. CRESTOR [Suspect]
     Indication: HYPERCHOLESTEROLAEMIA
     Dosage: 5 MG QD PO
     Route: 048
     Dates: start: 20060101
  2. TOPROL-XL [Concomitant]
  3. ASPIRIN [Concomitant]

REACTIONS (2)
  - POLLAKIURIA [None]
  - WEIGHT DECREASED [None]
